FAERS Safety Report 17166859 (Version 1)
Quarter: 2019Q4

REPORT INFORMATION
  Report Type: Spontaneous
  Country: DE (occurrence: DE)
  Receive Date: 20191217
  Receipt Date: 20191217
  Transmission Date: 20200122
  Serious: Yes (Other)
  Sender: FDA-Public Use
  Company Number: DE-INCYTE CORPORATION-2019IN012086

PATIENT

DRUGS (2)
  1. MARCUMAR [Interacting]
     Active Substance: PHENPROCOUMON
     Indication: PRODUCT USED FOR UNKNOWN INDICATION
     Dosage: UNK
     Route: 065
     Dates: start: 2014
  2. JAKAVI [Suspect]
     Active Substance: RUXOLITINIB
     Indication: MYELOFIBROSIS
     Dosage: 15 MG, BID
     Route: 065
     Dates: start: 2017

REACTIONS (5)
  - Drug interaction [Unknown]
  - Skin necrosis [Unknown]
  - Skin haemorrhage [Unknown]
  - Blister [Unknown]
  - Haematoma [Unknown]

NARRATIVE: CASE EVENT DATE: 2019
